FAERS Safety Report 13071252 (Version 1)
Quarter: 2016Q4

REPORT INFORMATION
  Report Type: Report from Study
  Country: US (occurrence: US)
  Receive Date: 20161229
  Receipt Date: 20161229
  Transmission Date: 20170207
  Serious: Yes (Hospitalization, Other)
  Sender: FDA-Public Use
  Company Number: US-AMGEN-USASP2016181729

PATIENT
  Age: 74 Year
  Sex: Female

DRUGS (6)
  1. VITAMIN D [Concomitant]
     Active Substance: CHOLECALCIFEROL
     Dosage: UNK
  2. VITAMINS D3 [Concomitant]
     Dosage: UNK
  3. THALIDOMIDE [Concomitant]
     Active Substance: THALIDOMIDE
     Dosage: UNK
  4. FOLIC ACID. [Concomitant]
     Active Substance: FOLIC ACID
     Dosage: UNK, FOR THREE MONTHS
  5. SYNTHROID [Concomitant]
     Active Substance: LEVOTHYROXINE SODIUM
     Indication: HYPOTHYROIDISM
     Dosage: UNK
  6. ENBREL [Suspect]
     Active Substance: ETANERCEPT
     Indication: RHEUMATOID ARTHRITIS
     Dosage: 50 MG, QWK
     Route: 065

REACTIONS (14)
  - Cardiac disorder [Unknown]
  - Rib fracture [Not Recovered/Not Resolved]
  - Dizziness [Unknown]
  - Drug effect incomplete [Unknown]
  - Malaise [Unknown]
  - Vomiting [Unknown]
  - Injection site haemorrhage [Unknown]
  - Pneumothorax traumatic [Unknown]
  - Femur fracture [Recovering/Resolving]
  - Procedural complication [Unknown]
  - Sternal fracture [Not Recovered/Not Resolved]
  - Road traffic accident [Unknown]
  - Abasia [Not Recovered/Not Resolved]
  - Injection site pain [Unknown]

NARRATIVE: CASE EVENT DATE: 2016
